FAERS Safety Report 11585927 (Version 1)
Quarter: 2015Q4

REPORT INFORMATION
  Report Type: Other
  Country: US (occurrence: US)
  Receive Date: 20151001
  Receipt Date: 20151001
  Transmission Date: 20160304
  Serious: Yes (Hospitalization)
  Sender: FDA-Public Use
  Company Number: US-ENDO PHARMACEUTICALS INC-2015-003029

PATIENT
  Age: 40 Year
  Sex: Female

DRUGS (1)
  1. PROPYLTHIOURACIL TABLETS 50 MG [Suspect]
     Active Substance: PROPYLTHIOURACIL
     Indication: BASEDOW^S DISEASE
     Route: 065

REACTIONS (4)
  - Lupus-like syndrome [Unknown]
  - Respiratory failure [Recovered/Resolved]
  - Pulmonary alveolar haemorrhage [Unknown]
  - Anti-neutrophil cytoplasmic antibody positive vasculitis [Unknown]
